FAERS Safety Report 5893628-3 (Version None)
Quarter: 2008Q3

REPORT INFORMATION
  Report Type: 
  Country: None (occurrence: None)
  Receive Date: 20080923
  Receipt Date: 20070924
  Transmission Date: 20090109
  Serious: No
  Sender: FDA-Public Use
  Company Number: US-ASTRAZENECA-2007UW22390

PATIENT
  Sex: Female

DRUGS (2)
  1. SEROQUEL [Suspect]
     Indication: SLEEP DISORDER
     Route: 048
     Dates: start: 20070901
  2. ASCORBIC ACID [Concomitant]

REACTIONS (4)
  - DIZZINESS [None]
  - ORAL DISCOMFORT [None]
  - RASH [None]
  - SOMNOLENCE [None]
